FAERS Safety Report 4896331-1 (Version None)
Quarter: 2006Q1

REPORT INFORMATION
  Report Type: 
  Country: None (occurrence: None)
  Receive Date: 20060126
  Receipt Date: 20060120
  Transmission Date: 20060701
  Serious: Yes (Death)
  Sender: FDA-Public Use
  Company Number: 2006-00258

PATIENT
  Age: 85 Year
  Sex: Male

DRUGS (2)
  1. TRELSTAR [Suspect]
     Indication: NEOPLASM PROSTATE
     Dosage: 11.25 MG Q 3 MONTHS X 2 TOTAL, INTRAMUSCULAR
     Route: 030
     Dates: start: 20040330, end: 20040701
  2. CYPROTERONE ACETATE(CYPROTERONE ACETATE) [Suspect]
     Indication: NEOPLASM PROSTATE
     Dosage: 100 MG, DAILY, ORAL
     Route: 048
     Dates: start: 20040301, end: 20040712

REACTIONS (8)
  - COAGULOPATHY [None]
  - GASTROINTESTINAL HAEMORRHAGE [None]
  - HAEMOGLOBIN DECREASED [None]
  - HEPATIC ENCEPHALOPATHY [None]
  - HEPATITIS FULMINANT [None]
  - HEPATORENAL SYNDROME [None]
  - HYPOTENSION [None]
  - INTERNATIONAL NORMALISED RATIO INCREASED [None]
